FAERS Safety Report 10052629 (Version 1)
Quarter: 2014Q2

REPORT INFORMATION
  Report Type: Report from Study
  Country: US (occurrence: US)
  Receive Date: 20140402
  Receipt Date: 20140402
  Transmission Date: 20141212
  Serious: Yes (Death, Hospitalization)
  Sender: FDA-Public Use
  Company Number: US-MYLANLABS-2014S1004895

PATIENT
  Age: 67 Year
  Sex: Male
  Weight: 73.48 kg

DRUGS (13)
  1. CLOZAPINE TABLETS [Suspect]
     Indication: SCHIZOAFFECTIVE DISORDER
     Dates: start: 20100813, end: 20140128
  2. CLOZAPINE TABLETS [Suspect]
     Indication: SCHIZOAFFECTIVE DISORDER
  3. PROZAC [Concomitant]
  4. RISPERDAL [Concomitant]
  5. DEPAKOTE [Concomitant]
  6. TEGRETOL [Concomitant]
  7. FISH OIL [Concomitant]
  8. COLACE [Concomitant]
  9. MOTRIN [Concomitant]
  10. DITROPAN [Concomitant]
  11. ASPIRIN (E.C.) [Concomitant]
  12. SIMVASTATIN [Concomitant]
  13. PROAIR HFA [Concomitant]

REACTIONS (6)
  - Cardiac arrest [Fatal]
  - Faecaloma [Unknown]
  - Constipation [Not Recovered/Not Resolved]
  - Incontinence [Not Recovered/Not Resolved]
  - Asthenia [Not Recovered/Not Resolved]
  - Dyspnoea [Not Recovered/Not Resolved]
